FAERS Safety Report 8852803 (Version 2)
Quarter: 2012Q4

REPORT INFORMATION
  Report Type: 
  Country: US (occurrence: US)
  Receive Date: 20121022
  Receipt Date: 20121214
  Transmission Date: 20130627
  Serious: Yes (Other)
  Sender: FDA-Public Use
  Company Number: US-US-EMD SERONO, INC.-7168332

PATIENT
  Sex: Female

DRUGS (2)
  1. REBIF [Suspect]
     Indication: MULTIPLE SCLEROSIS
     Route: 058
     Dates: start: 20040219, end: 201201
  2. REBIF [Suspect]
     Route: 058

REACTIONS (5)
  - Ligament rupture [Recovering/Resolving]
  - Joint injury [Unknown]
  - Fall [Recovering/Resolving]
  - Laceration [Unknown]
  - Wrist fracture [Unknown]
